FAERS Safety Report 4841752-6 (Version None)
Quarter: 2005Q4

REPORT INFORMATION
  Report Type: 
  Country: None (occurrence: None)
  Receive Date: 20051130
  Receipt Date: 20051121
  Transmission Date: 20060501
  Serious: Yes (Other)
  Sender: FDA-Public Use
  Company Number: PHFR2005GB03800

PATIENT
  Age: 73 Year
  Sex: Male
  Weight: 87.3 kg

DRUGS (2)
  1. VALSARTAN [Suspect]
     Indication: BLOOD PRESSURE INCREASED
     Dosage: 80MG/DAY
     Route: 048
     Dates: start: 20050923, end: 20051104
  2. SIMVASTATIN [Concomitant]
     Indication: LIPIDS INCREASED
     Dosage: 40MG/DAY
     Route: 048

REACTIONS (2)
  - ARTHRITIS [None]
  - RASH [None]
